FAERS Safety Report 20926494 (Version 2)
Quarter: 2022Q2

REPORT INFORMATION
  Report Type: Other
  Country: US (occurrence: None)
  Receive Date: 20220607
  Receipt Date: 20220608
  Transmission Date: 20220721
  Serious: No
  Sender: FDA-Public Use
  Company Number: US-ROCHE-3112851

PATIENT
  Age: 60 Year
  Sex: Male
  Weight: 80.721 kg

DRUGS (5)
  1. OCREVUS [Suspect]
     Active Substance: OCRELIZUMAB
     Indication: Relapsing-remitting multiple sclerosis
     Dosage: 1ST 2 DOSES (PRESCRIBED AS INFUSE 300 MG INTRAVENOUSLY ON WEEK(S) 0 AND WEEK(S) 2 ,THEN REPEAT 600 M
     Route: 042
     Dates: start: 20220513
  2. NEURONTIN [Concomitant]
     Active Substance: GABAPENTIN
  3. VALIUM [Concomitant]
     Active Substance: DIAZEPAM
     Route: 048
  4. BENICAR HCT [Concomitant]
     Active Substance: HYDROCHLOROTHIAZIDE\OLMESARTAN MEDOXOMIL
  5. CRESTOR [Concomitant]
     Active Substance: ROSUVASTATIN CALCIUM

REACTIONS (3)
  - COVID-19 [Not Recovered/Not Resolved]
  - Balance disorder [Recovered/Resolved]
  - Diplopia [Recovered/Resolved]

NARRATIVE: CASE EVENT DATE: 20220601
